FAERS Safety Report 5090322-6 (Version None)
Quarter: 2006Q3

REPORT INFORMATION
  Report Type: 
  Country: None (occurrence: None)
  Receive Date: 20060828
  Receipt Date: 20060718
  Transmission Date: 20061208
  Serious: Yes (Other)
  Sender: FDA-Public Use
  Company Number: US-GLAXOSMITHKLINE-A0612656A

PATIENT
  Sex: Female

DRUGS (2)
  1. WELLBUTRIN [Suspect]
     Indication: DEPRESSION
     Dosage: 300MG PER DAY
     Route: 048
     Dates: start: 20040101
  2. WELLBUTRIN [Suspect]
     Dosage: 150MG TWICE PER DAY
     Route: 048

REACTIONS (3)
  - CONSTIPATION [None]
  - INSOMNIA [None]
  - NAUSEA [None]
